FAERS Safety Report 4677496-3 (Version None)
Quarter: 2005Q2

REPORT INFORMATION
  Report Type: 
  Country: None (occurrence: None)
  Receive Date: 20050527
  Receipt Date: 20050527
  Transmission Date: 20051028
  Serious: No
  Sender: FDA-Public Use
  Company Number: None

PATIENT
  Age: 44 Year
  Sex: Male
  Weight: 81.1939 kg

DRUGS (1)
  1. ZOOM! WHITENING GEL IN OFFICE TO 25.6%  H205 DISCUS DENTAL [Suspect]
     Indication: DENTAL TREATMENT
     Dosage: 3 HR TOPICAL
     Route: 061
     Dates: start: 20050525, end: 20050525

REACTIONS (8)
  - ACCIDENTAL EXPOSURE [None]
  - BLISTER [None]
  - BURNING SENSATION [None]
  - CHEILITIS [None]
  - ERYTHEMA [None]
  - LIP DISCOLOURATION [None]
  - LIP PAIN [None]
  - SWELLING FACE [None]
